FAERS Safety Report 4391466-4 (Version None)
Quarter: 2004Q3

REPORT INFORMATION
  Report Type: 
  Country: None (occurrence: None)
  Receive Date: 20040707
  Receipt Date: 20040622
  Transmission Date: 20050211
  Serious: Yes (Other)
  Sender: FDA-Public Use
  Company Number: ZA-GLAXOSMITHKLINE-B0337461A

PATIENT
  Age: 60 Year
  Sex: Male

DRUGS (4)
  1. ATOVAQUONE + PROGUANIL HYDROCHLORIDE [Suspect]
     Indication: MALARIA PROPHYLAXIS
     Dosage: 1TAB PER DAY
     Route: 048
     Dates: start: 20040610, end: 20040619
  2. METFORMIN [Concomitant]
     Dosage: 500MG PER DAY
  3. ACTOS [Concomitant]
  4. LANTUS [Concomitant]
     Dosage: 10UNIT AT NIGHT
     Route: 058

REACTIONS (1)
  - HYPOGLYCAEMIA [None]
